FAERS Safety Report 9980298 (Version 1)
Quarter: 2014Q1

REPORT INFORMATION
  Report Type: Report from Study
  Country: US (occurrence: US)
  Receive Date: 20140307
  Receipt Date: 20140307
  Transmission Date: 20141002
  Serious: No
  Sender: FDA-Public Use
  Company Number: US-ABBVIE-13P-163-1175908-00

PATIENT
  Age: 49 Year
  Sex: Female
  Weight: 122.58 kg

DRUGS (11)
  1. HUMIRA [Suspect]
     Indication: RHEUMATOID ARTHRITIS
     Route: 058
     Dates: start: 20131122
  2. METHOTREXATE [Concomitant]
     Indication: RHEUMATOID ARTHRITIS
  3. SUMATRIPTAN [Concomitant]
     Indication: MIGRAINE
  4. TRAMADOL [Concomitant]
     Indication: RHEUMATOID ARTHRITIS
  5. FLUCONAZOLE [Concomitant]
     Indication: DEPRESSION
  6. TEMAZEPAM [Concomitant]
     Indication: INSOMNIA
  7. TIZANIDINE [Concomitant]
     Indication: MUSCLE SPASMS
  8. HYDROCODONE [Concomitant]
     Indication: RHEUMATOID ARTHRITIS
  9. MELOXICAM [Concomitant]
     Indication: RHEUMATOID ARTHRITIS
  10. FOLIC ACID [Concomitant]
     Indication: VITAMIN SUPPLEMENTATION
  11. HYDROXYCHLOROQUINE [Concomitant]
     Indication: RHEUMATOID ARTHRITIS

REACTIONS (1)
  - Vision blurred [Not Recovered/Not Resolved]
